FAERS Safety Report 24751847 (Version 2)
Quarter: 2025Q1

REPORT INFORMATION
  Report Type: Report from Study
  Country: US (occurrence: US)
  Receive Date: 20241219
  Receipt Date: 20250130
  Transmission Date: 20250409
  Serious: No
  Sender: NOVARTIS
  Company Number: US-002147023-NVSC2024US240162

PATIENT
  Age: 49 Year
  Sex: Female

DRUGS (1)
  1. KESIMPTA [Suspect]
     Active Substance: OFATUMUMAB
     Indication: Multiple sclerosis
     Dosage: 20 MG, QMO
     Route: 058
     Dates: start: 20240928

REACTIONS (8)
  - Nausea [Unknown]
  - Gait disturbance [Unknown]
  - Fatigue [Unknown]
  - Drug ineffective [Unknown]
  - Vomiting [Not Recovered/Not Resolved]
  - Feeling abnormal [Unknown]
  - Depressed mood [Unknown]
  - Condition aggravated [Unknown]

NARRATIVE: CASE EVENT DATE: 20240928
